FAERS Safety Report 21828703 (Version 3)
Quarter: 2023Q1

REPORT INFORMATION
  Report Type: Report from Study
  Country: CA (occurrence: CA)
  Receive Date: 20230106
  Receipt Date: 20230215
  Transmission Date: 20230418
  Serious: Yes (Hospitalization, Other)
  Sender: FDA-Public Use
  Company Number: CA-ABBVIE-4258639

PATIENT
  Age: 72 Year
  Sex: Male

DRUGS (1)
  1. SKYRIZI [Suspect]
     Active Substance: RISANKIZUMAB-RZAA
     Indication: Psoriasis
     Route: 058
     Dates: start: 20211014

REACTIONS (4)
  - Lung neoplasm malignant [Unknown]
  - Blood glucose abnormal [Unknown]
  - Metastases to bone [Unknown]
  - Malignant neoplasm of pleura metastatic [Unknown]

NARRATIVE: CASE EVENT DATE: 20221229
